FAERS Safety Report 5209350-2 (Version None)
Quarter: 2006Q4

REPORT INFORMATION
  Report Type: 
  Country: None (occurrence: None)
  Receive Date: 20061101
  Receipt Date: 20060823
  Transmission Date: 20070319
  Serious: Yes (Hospitalization)
  Sender: FDA-Public Use
  Company Number: 007

PATIENT
  Age: 14 Year
  Sex: Female

DRUGS (1)
  1. INCRELEX [Suspect]
     Indication: BODY HEIGHT BELOW NORMAL
     Dosage: SEE IMAGE, PRIOR TO AUG. 18 2006
     Dates: end: 20060818

REACTIONS (1)
  - HYPOGLYCAEMIA [None]
